FAERS Safety Report 16659964 (Version 2)
Quarter: 2019Q3

REPORT INFORMATION
  Report Type: Report from Study
  Country: AU (occurrence: AU)
  Receive Date: 20190802
  Receipt Date: 20190811
  Transmission Date: 20191004
  Serious: Yes (Hospitalization, Other)
  Sender: FDA-Public Use
  Company Number: PHHY2019AU175458

PATIENT
  Age: 17 Year
  Sex: Male
  Weight: 77 kg

DRUGS (1)
  1. TRAMETINIB [Suspect]
     Active Substance: TRAMETINIB
     Indication: GLIOMA
     Dosage: 2 MG, QD
     Route: 048
     Dates: start: 20190626, end: 20190710

REACTIONS (3)
  - Rash pustular [Recovering/Resolving]
  - Epilepsy [Recovered/Resolved]
  - Rash maculo-papular [Recovering/Resolving]

NARRATIVE: CASE EVENT DATE: 20190710
